FAERS Safety Report 16285997 (Version 1)
Quarter: 2019Q2

REPORT INFORMATION
  Report Type: Spontaneous
  Country: US (occurrence: US)
  Receive Date: 20190508
  Receipt Date: 20190508
  Transmission Date: 20190711
  Serious: No
  Sender: FDA-Public Use
  Company Number: US-PFIZER INC-2016380257

PATIENT
  Age: 70 Year
  Sex: Male
  Weight: 102.5 kg

DRUGS (24)
  1. DOXAZOSIN MESYLATE. [Concomitant]
     Active Substance: DOXAZOSIN MESYLATE
     Dosage: 6 MG, DAILY (TAKE 1 AND 1/2 TABLETS EVERY DAY)
     Dates: start: 20150707
  2. LYRICA [Suspect]
     Active Substance: PREGABALIN
     Dosage: 75 MG, 1X/DAY
  3. DIAZEPAM. [Concomitant]
     Active Substance: DIAZEPAM
     Indication: TREMOR
     Dosage: 2 MG, 2X/DAY
     Dates: start: 20160725
  4. FUROSEMIDE. [Concomitant]
     Active Substance: FUROSEMIDE
     Dosage: 40 MG, DAILY (TAKE 1 TABLET BY ORAL ROUTE EVERY DAY)
     Route: 048
     Dates: start: 20140403
  5. GLIMEPIRIDE. [Concomitant]
     Active Substance: GLIMEPIRIDE
     Dosage: 2 MG, 2X/DAY
     Dates: start: 20160524
  6. LYRICA [Suspect]
     Active Substance: PREGABALIN
     Indication: DIABETIC NEUROPATHY
     Dosage: 75 MG, 2X/DAY (TAKE 1 CAPSULE BY ORAI ROUTE 2 TIMES EVERY DAY)
     Route: 048
     Dates: start: 20160803
  7. HYDROCODONE-ACETAMINOPHEN [Concomitant]
     Active Substance: ACETAMINOPHEN\HYDROCODONE
     Indication: BACK PAIN
     Dosage: UNK, AS NEEDED (TAKE 1-2 TABLET EVERY 8 HR)
     Route: 048
     Dates: start: 20160310
  8. METOPROLOL TARTRATE. [Concomitant]
     Active Substance: METOPROLOL TARTRATE
     Dosage: 12.5 MG, 2X/DAY (TAKE 1/2 TABLET TWICE DAILY)
     Dates: start: 20160603
  9. POTASSIUM CHLORIDE. [Concomitant]
     Active Substance: POTASSIUM CHLORIDE
     Dosage: 40 MEQ, ALTERNATE DAY (TAKE 2 TABLET BY ORAL ROUTE EVERY OTHER DAY WITH FOOD)
     Route: 048
     Dates: start: 20151124
  10. LYRICA [Suspect]
     Active Substance: PREGABALIN
     Dosage: 75 MG, 2X/DAY (DEPENDING ON DIABETIC NERVE PAIN)
     Route: 048
     Dates: start: 2015
  11. ASPIR 81 [Concomitant]
     Active Substance: ASPIRIN
     Dosage: 81 MG, DAILY
     Route: 048
     Dates: start: 20110509
  12. ATORVASTATIN CALCIUM. [Concomitant]
     Active Substance: ATORVASTATIN CALCIUM
     Dosage: 40 MG, DAILY
     Dates: start: 20160224
  13. IRON [Concomitant]
     Active Substance: IRON
     Dosage: 325 MG, 2X/DAY
     Route: 048
  14. LEVEMIR [Concomitant]
     Active Substance: INSULIN DETEMIR
     Indication: DIABETES MELLITUS
     Dosage: 50 IU, DAILY
     Dates: start: 20160803
  15. LOSARTAN POTASSIUM. [Concomitant]
     Active Substance: LOSARTAN POTASSIUM
     Dosage: 100 MG, DAILY (TAKE 1 TABLET EVERY DAY)
     Dates: start: 20160210
  16. MAGNESIUM OXIDE. [Concomitant]
     Active Substance: MAGNESIUM OXIDE
     Dosage: 250 MG, SINGLE (TAKE 1 TABLET BY ORAL ROUTE ONCE)
     Route: 048
     Dates: start: 20151209
  17. NITROSTAT [Concomitant]
     Active Substance: NITROGLYCERIN
     Indication: MYOCARDIAL INFARCTION
     Dosage: 0.4 MG, AS NEEDED (5 MIN UNTIL RELIEF IF PAIN PERSISTS AFTER 3 TABLETS IN 15 MIN)
     Route: 060
     Dates: start: 20090727
  18. CLOPIDOGREL [Concomitant]
     Active Substance: CLOPIDOGREL BISULFATE
     Indication: ANTICOAGULANT THERAPY
     Dosage: 25 MG, 1X/DAY
     Route: 048
  19. VITAMIN D3 [Concomitant]
     Active Substance: CHOLECALCIFEROL
     Dosage: 1000 IU, SINGLE  (TAKE 1 CAPSULE BY ORAL ROUTE ONCE)
     Route: 048
     Dates: start: 20151209
  20. NOVOLOG [Concomitant]
     Active Substance: INSULIN ASPART
     Indication: DIABETES MELLITUS
     Dosage: UNK (INJECT 30 BY SUBCUTANEOUS ROUTE WITH MEALS IF SUGAR IS OVER 130 (OR AS DIRECTED)
     Route: 058
     Dates: start: 20160803
  21. VITAMIN C [Concomitant]
     Active Substance: ASCORBIC ACID
     Dosage: 500 MG, UNK
  22. NOVOLOG [Concomitant]
     Active Substance: INSULIN ASPART
     Dosage: UNK, 3X/DAY (20 UNITS )
  23. LEVEMIR [Concomitant]
     Active Substance: INSULIN DETEMIR
     Dosage: UNK, 2X/DAY (18 UNITS )
  24. PROTONIX [Concomitant]
     Active Substance: PANTOPRAZOLE SODIUM
     Dosage: 40 MG, DAILY (TAKE 1 TABLET EVERY DAY)
     Route: 048
     Dates: start: 20160803

REACTIONS (4)
  - Muscle spasms [Unknown]
  - Intentional product misuse [Unknown]
  - Dyskinesia [Unknown]
  - Product use issue [Unknown]

NARRATIVE: CASE EVENT DATE: 20160803
